FAERS Safety Report 6567132-3 (Version None)
Quarter: 2010Q1

REPORT INFORMATION
  Report Type: 
  Country: None (occurrence: None)
  Receive Date: 20100202
  Receipt Date: 20100128
  Transmission Date: 20100710
  Serious: Yes (Other)
  Sender: FDA-Public Use
  Company Number: AU-RB-001412-10

PATIENT
  Age: 81 Year
  Sex: Female

DRUGS (2)
  1. NORSPAN [Suspect]
     Indication: DRUG USE FOR UNKNOWN INDICATION
     Dosage: 20 MCG PER HOUR
     Route: 062
     Dates: start: 20090827, end: 20090828
  2. IBRUPROFEN [Suspect]
     Indication: DRUG USE FOR UNKNOWN INDICATION
     Dosage: DOSING INFORMATION UNKNOWN.
     Route: 065

REACTIONS (4)
  - HALLUCINATION [None]
  - HEADACHE [None]
  - HYPERTENSION [None]
  - NAUSEA [None]
